FAERS Safety Report 11415850 (Version 1)
Quarter: 2015Q3

REPORT INFORMATION
  Report Type: Spontaneous
  Country: US (occurrence: None)
  Receive Date: 20150824
  Receipt Date: 20150824
  Transmission Date: 20151125
  Serious: Yes (Life-Threatening, Hospitalization)
  Sender: FDA-Public Use
  Company Number: None

PATIENT
  Age: 52 Year
  Sex: Female
  Weight: 89.81 kg

DRUGS (2)
  1. HYDROCHLOROTHYAZIDE (HCTZ) [Concomitant]
  2. CHANTIX [Suspect]
     Active Substance: VARENICLINE TARTRATE
     Indication: SMOKING CESSATION THERAPY
     Route: 048
     Dates: start: 20150803, end: 20150820

REACTIONS (1)
  - Depression [None]

NARRATIVE: CASE EVENT DATE: 20150820
